FAERS Safety Report 8549215-1 (Version None)
Quarter: 2012Q3

REPORT INFORMATION
  Report Type: 
  Country: None (occurrence: None)
  Receive Date: 20120730
  Receipt Date: 20120726
  Transmission Date: 20120928
  Serious: No
  Sender: FDA-Public Use
  Company Number: US-TEVA-350567USA

PATIENT
  Sex: Male
  Weight: 8.626 kg

DRUGS (2)
  1. PROAIR HFA [Suspect]
     Indication: RESPIRATORY TRACT CONGESTION
     Dosage: 2 PUFFS Q4-6H PRN
     Route: 055
     Dates: start: 20120725, end: 20120725
  2. PROAIR HFA [Suspect]
     Indication: COUGH

REACTIONS (4)
  - RESPIRATORY RATE INCREASED [None]
  - DRUG ADMINISTERED TO PATIENT OF INAPPROPRIATE AGE [None]
  - PSYCHOMOTOR HYPERACTIVITY [None]
  - HEART RATE INCREASED [None]
